FAERS Safety Report 10224862 (Version 1)
Quarter: 2014Q2

REPORT INFORMATION
  Report Type: Spontaneous
  Country: JP (occurrence: JP)
  Receive Date: 20140609
  Receipt Date: 20140609
  Transmission Date: 20141212
  Serious: Yes (Disabling)
  Sender: FDA-Public Use
  Company Number: JP-GLAXOSMITHKLINE-B0981279A

PATIENT
  Age: 54 Year
  Sex: Female

DRUGS (4)
  1. VOTRIENT 200MG [Suspect]
     Indication: PLEOMORPHIC LIPOSARCOMA
     Dosage: 400MG PER DAY
     Route: 048
     Dates: start: 20130105, end: 20130211
  2. PAZOPANIB [Suspect]
     Indication: PLEOMORPHIC LIPOSARCOMA
     Dosage: 400MG PER DAY
     Route: 048
     Dates: start: 20121027
  3. LANSOPRAZOLE [Concomitant]
     Route: 065
  4. DEXAMETHASONE [Concomitant]
     Indication: PLEOMORPHIC LIPOSARCOMA
     Route: 065

REACTIONS (1)
  - Palmar-plantar erythrodysaesthesia syndrome [Unknown]
